FAERS Safety Report 8378585-2 (Version None)
Quarter: 2012Q2

REPORT INFORMATION
  Report Type: 
  Country: None (occurrence: None)
  Receive Date: 20120522
  Receipt Date: 20111118
  Transmission Date: 20120825
  Serious: No
  Sender: FDA-Public Use
  Company Number: US-ASTRAZENECA-2011SE70243

PATIENT
  Sex: Female

DRUGS (2)
  1. ZANTAC [Suspect]
     Route: 065
  2. OMEPRAZOLE [Suspect]
     Route: 048

REACTIONS (1)
  - DRUG SCREEN POSITIVE [None]
